FAERS Safety Report 7174322-8 (Version None)
Quarter: 2010Q4

REPORT INFORMATION
  Report Type: 
  Country: None (occurrence: None)
  Receive Date: 20101219
  Receipt Date: 20100324
  Transmission Date: 20110411
  Serious: No
  Sender: FDA-Public Use
  Company Number: US-AMGEN-KDL401854

PATIENT

DRUGS (6)
  1. ENBREL [Suspect]
     Indication: PRODUCT USED FOR UNKNOWN INDICATION
     Dosage: 50 MG, QWK
     Route: 058
  2. DULOXETIME HYDROCHLORIDE [Concomitant]
     Dosage: 30 MG, UNK
  3. CYCLOBENZAPRINE HCL [Concomitant]
     Dosage: 10 MG, UNK
  4. LEVOTHYROXINE SODIUM [Concomitant]
     Dosage: 50 A?G, UNK
  5. DOXEPIN HYDROCHLORIDE [Concomitant]
     Dosage: 50 MG, UNK
  6. MULTI-VITAMINS [Concomitant]
     Dosage: UNK UNK, UNK

REACTIONS (2)
  - RASH ERYTHEMATOUS [None]
  - RASH PRURITIC [None]
